FAERS Safety Report 14409976 (Version 2)
Quarter: 2018Q2

REPORT INFORMATION
  Report Type: Spontaneous
  Country: US (occurrence: US)
  Receive Date: 20180119
  Receipt Date: 20180406
  Transmission Date: 20180711
  Serious: No
  Sender: FDA-Public Use
  Company Number: US-ASTRAZENECA-2018SE07530

PATIENT

DRUGS (1)
  1. TUDORZA PRESSAIR [Suspect]
     Active Substance: ACLIDINIUM BROMIDE
     Route: 055

REACTIONS (6)
  - Drug dose omission [Unknown]
  - Device failure [Unknown]
  - Device issue [Unknown]
  - Product label issue [Unknown]
  - Lung disorder [Unknown]
  - Packaging design issue [Unknown]
